FAERS Safety Report 8024995-2 (Version None)
Quarter: 2012Q1

REPORT INFORMATION
  Report Type: 
  Country: None (occurrence: None)
  Receive Date: 20120105
  Receipt Date: 20120103
  Transmission Date: 20120608
  Serious: Yes (Other)
  Sender: FDA-Public Use
  Company Number: BR-ROCHE-1018022

PATIENT
  Sex: Female
  Weight: 60 kg

DRUGS (7)
  1. MABTHERA [Suspect]
     Dates: start: 20110714
  2. MABTHERA [Suspect]
     Indication: SYSTEMIC LUPUS ERYTHEMATOSUS
     Route: 042
     Dates: start: 20110621, end: 20110714
  3. PLAQUENIL [Concomitant]
  4. ENDOFOLIN [Concomitant]
  5. METICORTEN [Concomitant]
  6. NOVOFER [Concomitant]
  7. CORTICOSTEROID (UNK INGREDIENTS) [Concomitant]

REACTIONS (2)
  - HAEMOGLOBIN DECREASED [None]
  - DRUG INEFFECTIVE [None]
